FAERS Safety Report 15106482 (Version 1)
Quarter: 2018Q3

REPORT INFORMATION
  Report Type: Spontaneous
  Country: US (occurrence: US)
  Receive Date: 20180704
  Receipt Date: 20180704
  Transmission Date: 20181010
  Serious: No
  Sender: FDA-Public Use
  Company Number: US-SA-2018SA174433

PATIENT
  Age: 58 Year
  Sex: Female

DRUGS (4)
  1. PRALUENT [Suspect]
     Active Substance: ALIROCUMAB
     Indication: MYOCARDIAL ISCHAEMIA
     Dosage: 1 DF, QOW
     Route: 058
     Dates: start: 20180601
  2. CARVEDILOL. [Concomitant]
     Active Substance: CARVEDILOL
  3. LISINOPRIL. [Concomitant]
     Active Substance: LISINOPRIL
  4. ASPIRINE [Concomitant]
     Active Substance: ASPIRIN

REACTIONS (5)
  - Nasal congestion [Unknown]
  - Non-cardiac chest pain [Unknown]
  - Hyperhidrosis [Unknown]
  - Influenza like illness [Unknown]
  - Myalgia [Unknown]
